FAERS Safety Report 7383241-3 (Version None)
Quarter: 2011Q1

REPORT INFORMATION
  Report Type: 
  Country: None (occurrence: None)
  Receive Date: 20110330
  Receipt Date: 20110317
  Transmission Date: 20110831
  Serious: Yes (Other)
  Sender: FDA-Public Use
  Company Number: PHFR2011GB01605

PATIENT
  Sex: Female

DRUGS (7)
  1. CLOZARIL [Suspect]
     Dosage: 200MG DAILY
     Route: 048
  2. VALPROATE SODIUM [Concomitant]
     Indication: CONVULSION
     Dosage: 1 G, BID
  3. CLONAZEPAM [Concomitant]
     Dosage: 0.5G DAILY
  4. CLOZARIL [Suspect]
     Indication: SCHIZOPHRENIA
     Dosage: UNK DF, UNK
     Route: 048
     Dates: start: 20101018
  5. AMISULPRIDE [Concomitant]
     Dosage: 600MG DAILY
     Route: 048
  6. HYOSCINE [Concomitant]
     Dosage: 300MCG DAILY
  7. CITALOPRAM HYDROBROMIDE [Concomitant]
     Dosage: 20MG DAILY

REACTIONS (3)
  - TOOTH LOSS [None]
  - FACIAL BONES FRACTURE [None]
  - EPILEPSY [None]
